FAERS Safety Report 8183355-4 (Version None)
Quarter: 2012Q1

REPORT INFORMATION
  Report Type: 
  Country: None (occurrence: None)
  Receive Date: 20120130
  Receipt Date: 20111107
  Transmission Date: 20120608
  Serious: Yes (Other)
  Sender: FDA-Public Use
  Company Number: 037743

PATIENT
  Age: 31 Year
  Sex: Female
  Weight: 63 kg

DRUGS (2)
  1. KEPPRA [Suspect]
     Indication: CONVULSION
     Dosage: (500 MG, DAILY ORAL), (1500 MG, DAILY DOSE:1500 MG ORAL)
     Route: 048
     Dates: start: 20100101
  2. KEPPRA [Suspect]
     Indication: CONVULSION
     Dosage: (500 MG, DAILY ORAL), (1500 MG, DAILY DOSE:1500 MG ORAL)
     Route: 048
     Dates: start: 20110519

REACTIONS (11)
  - RHINORRHOEA [None]
  - BACK PAIN [None]
  - FATIGUE [None]
  - ADVERSE DRUG REACTION [None]
  - SUICIDAL IDEATION [None]
  - SINUS DISORDER [None]
  - LOSS OF EMPLOYMENT [None]
  - CRYING [None]
  - DEPRESSION [None]
  - IRRITABILITY [None]
  - SOMNOLENCE [None]
